FAERS Safety Report 4381413-3 (Version None)
Quarter: 2004Q2

REPORT INFORMATION
  Report Type: 
  Country: None (occurrence: None)
  Receive Date: 20040616
  Receipt Date: 20040601
  Transmission Date: 20050107
  Serious: Yes (Death)
  Sender: FDA-Public Use
  Company Number: US_0406103406

PATIENT
  Age: 19 Year

DRUGS (3)
  1. OLANZAPINE [Suspect]
  2. VALPROIC ACID [Concomitant]
  3. GABAPENTIN [Concomitant]

REACTIONS (2)
  - COMPLETED SUICIDE [None]
  - MULTIPLE DRUG OVERDOSE INTENTIONAL [None]
